FAERS Safety Report 6525912-4 (Version None)
Quarter: 2009Q4

REPORT INFORMATION
  Report Type: 
  Country: None (occurrence: None)
  Receive Date: 20091222
  Receipt Date: 20091210
  Transmission Date: 20100525
  Serious: Yes (Hospitalization)
  Sender: FDA-Public Use
  Company Number: 2009AL007826

PATIENT
  Age: 45 Year
  Sex: Male

DRUGS (7)
  1. METFORMIN HCL [Suspect]
     Indication: TYPE 2 DIABETES MELLITUS
     Dosage: 850 MG;BID
     Dates: start: 20050626
  2. NOVOMIX [Concomitant]
  3. DEPAKENE [Concomitant]
  4. MIRTAZAPINE [Concomitant]
  5. BETAHISTINE [Concomitant]
  6. LIPITOR [Concomitant]
  7. FORTZAAR [Concomitant]

REACTIONS (2)
  - BLOOD GLUCOSE DECREASED [None]
  - DRUG INTERACTION [None]
